FAERS Safety Report 8524208-9 (Version None)
Quarter: 2012Q3

REPORT INFORMATION
  Report Type: 
  Country: None (occurrence: None)
  Receive Date: 20120716
  Receipt Date: 20120716
  Transmission Date: 20120928
  Serious: Yes (Other)
  Sender: FDA-Public Use
  Company Number: None

PATIENT
  Sex: Male

DRUGS (1)
  1. ZOLADEX [Suspect]
     Indication: PROSTATE CANCER
     Dosage: 10.8 ONCE EVERY 3 MONTH SUBDERMAL
     Route: 059
     Dates: start: 20120304, end: 20120604

REACTIONS (3)
  - MALAISE [None]
  - BLOOD GLUCOSE INCREASED [None]
  - DEVICE DISLOCATION [None]
